FAERS Safety Report 25917514 (Version 1)
Quarter: 2025Q4

REPORT INFORMATION
  Report Type: Spontaneous
  Country: US (occurrence: US)
  Receive Date: 20251014
  Receipt Date: 20251014
  Transmission Date: 20260118
  Serious: Yes (Other)
  Sender: AUROBINDO
  Company Number: US-AUROBINDO-AUR-APL-2021-018000

PATIENT
  Age: 43 Year
  Sex: Female

DRUGS (9)
  1. VALGANCICLOVIR [Suspect]
     Active Substance: VALGANCICLOVIR
     Indication: Product used for unknown indication
     Dosage: UNK (FOR 2 WEEKS)
     Route: 048
  2. LAPINE T-LYMPHOCYTE IMMUNE GLOBULIN [Suspect]
     Active Substance: LAPINE T-LYMPHOCYTE IMMUNE GLOBULIN
     Indication: Immunosuppressant drug therapy
     Dosage: UNK
     Route: 065
  3. MYFORTIC [Suspect]
     Active Substance: MYCOPHENOLATE SODIUM
     Indication: Immunosuppressant drug therapy
     Dosage: 360 MILLIGRAM, FOUR TIMES/DAY
     Route: 065
  4. MYFORTIC [Suspect]
     Active Substance: MYCOPHENOLATE SODIUM
     Dosage: 360 MILLIGRAM, TWO TIMES A DAY
     Route: 065
  5. MYFORTIC [Suspect]
     Active Substance: MYCOPHENOLATE SODIUM
     Dosage: 360 MILLIGRAM, ONCE A DAY
  6. PREDNISONE [Suspect]
     Active Substance: PREDNISONE
     Indication: Immunosuppressant drug therapy
     Dosage: UNK
     Route: 065
  7. TACROLIMUS [Suspect]
     Active Substance: TACROLIMUS
     Indication: Immunosuppressant drug therapy
     Dosage: UNK
     Route: 065
  8. TRETINOIN [Concomitant]
     Active Substance: TRETINOIN
     Indication: Milia
     Dosage: UNK
     Route: 065
  9. CIDOFOVIR [Concomitant]
     Active Substance: CIDOFOVIR
     Indication: Product used for unknown indication
     Dosage: UNK
     Route: 061

REACTIONS (4)
  - Myelosuppression [Unknown]
  - Neutropenia [Unknown]
  - Human polyomavirus infection [Recovering/Resolving]
  - Trichodysplasia spinulosa [Recovering/Resolving]
